FAERS Safety Report 9354700 (Version 2)
Quarter: 2013Q2

REPORT INFORMATION
  Report Type: Report from Study
  Country: CA (occurrence: CA)
  Receive Date: 20130619
  Receipt Date: 20130627
  Transmission Date: 20140414
  Serious: Yes (Other)
  Sender: FDA-Public Use
  Company Number: CA-ROCHE-1237833

PATIENT
  Sex: Male
  Weight: 101.2 kg

DRUGS (5)
  1. XELODA [Suspect]
     Indication: GASTRIC CANCER
     Route: 048
     Dates: start: 201207
  2. ZYLOPRIM [Concomitant]
  3. ATORVASTATIN [Concomitant]
  4. ACCUPRIL [Concomitant]
  5. ASPIRIN [Concomitant]

REACTIONS (2)
  - Gastric cancer [Not Recovered/Not Resolved]
  - Hypertension [Unknown]
